FAERS Safety Report 25724408 (Version 1)
Quarter: 2025Q3

REPORT INFORMATION
  Report Type: Spontaneous
  Country: EU (occurrence: None)
  Receive Date: 20250826
  Receipt Date: 20250826
  Transmission Date: 20251020
  Serious: Yes (Hospitalization)
  Sender: Alvotech
  Company Number: EU-ALVOTECHPMS-2025-ALVOTECHPMS-004958

PATIENT
  Age: 60 Year
  Sex: Female

DRUGS (1)
  1. ADALIMUMAB [Suspect]
     Active Substance: ADALIMUMAB
     Indication: Polyarthritis
     Route: 058
     Dates: start: 202506, end: 202506

REACTIONS (2)
  - Myalgia [Not Recovered/Not Resolved]
  - Injection site reaction [Recovered/Resolved]

NARRATIVE: CASE EVENT DATE: 20250601
